FAERS Safety Report 16253821 (Version 1)
Quarter: 2019Q2

REPORT INFORMATION
  Report Type: Report from Study
  Country: None (occurrence: US)
  Receive Date: 20190430
  Receipt Date: 20190430
  Transmission Date: 20190711
  Serious: Yes (Hospitalization)
  Sender: FDA-Public Use
  Company Number: US-ABBVIE-19S-163-2719430-00

PATIENT
  Age: 76 Year
  Sex: Male

DRUGS (2)
  1. DUOPA [Suspect]
     Active Substance: CARBIDOPA\LEVODOPA
     Route: 050
     Dates: start: 2019
  2. DUOPA [Suspect]
     Active Substance: CARBIDOPA\LEVODOPA
     Indication: PRODUCT USED FOR UNKNOWN INDICATION
     Route: 050
     Dates: start: 20150914, end: 2019

REACTIONS (5)
  - Medical device discomfort [Unknown]
  - Unevaluable event [Unknown]
  - Medical device removal [Unknown]
  - Hospitalisation [Recovered/Resolved]
  - Device kink [Unknown]

NARRATIVE: CASE EVENT DATE: 20190321
